FAERS Safety Report 19168895 (Version 2)
Quarter: 2021Q2

REPORT INFORMATION
  Report Type: Spontaneous
  Country: US (occurrence: US)
  Receive Date: 20210422
  Receipt Date: 20210526
  Transmission Date: 20210717
  Serious: Yes (Other)
  Sender: FDA-Public Use
  Company Number: US-INCYTE CORPORATION-2021IN003377

PATIENT

DRUGS (16)
  1. JAKAFI [Suspect]
     Active Substance: RUXOLITINIB
     Dosage: UNK
     Route: 065
     Dates: start: 201808
  2. OMEGA 3 [FISH OIL] [Concomitant]
     Active Substance: FISH OIL
     Indication: BLOOD TRIGLYCERIDES DECREASED
     Dosage: 2 DOSAGE FORM, BID
     Route: 048
     Dates: start: 20180109
  3. JAKAFI [Suspect]
     Active Substance: RUXOLITINIB
     Dosage: 10 MILLIGRAM, BID
     Route: 048
     Dates: start: 20190402
  4. NAVITOCLAX [Suspect]
     Active Substance: NAVITOCLAX
     Dosage: 100 MILLIGRAM, QD
     Route: 048
     Dates: start: 20190220, end: 20190226
  5. NAVITOCLAX [Suspect]
     Active Substance: NAVITOCLAX
     Dosage: 200 MILLIGRAM, QD
     Route: 048
     Dates: start: 20190227
  6. SITAGLIPTIN [Concomitant]
     Active Substance: SITAGLIPTIN
     Indication: TYPE 2 DIABETES MELLITUS
     Dosage: 100 MILLIGRAM, QD
     Route: 048
     Dates: start: 20180604
  7. TYLENOL [Concomitant]
     Active Substance: ACETAMINOPHEN
     Indication: PAIN IN EXTREMITY
     Dosage: 650 MILLIGRAM AS REQUIRED
     Route: 054
     Dates: start: 20201021
  8. JAKAFI [Suspect]
     Active Substance: RUXOLITINIB
     Indication: MYELOFIBROSIS
     Dosage: 20 MILLIGRAM, BID
     Route: 048
     Dates: start: 20190213, end: 20190401
  9. ALPHA LIPOIC ACID [Concomitant]
     Active Substance: .ALPHA.-LIPOIC ACID
     Indication: ANTIOXIDANT THERAPY
     Dosage: 100 MILLIGRAM, QD
     Route: 048
     Dates: start: 2018
  10. BETA CAROTENE. [Concomitant]
     Active Substance: BETA CAROTENE
     Indication: VITAMIN SUPPLEMENTATION
     Dosage: 1 DOSAGE FORM, QD (1000)
     Route: 048
     Dates: start: 2018
  11. FOLIC ACID. [Concomitant]
     Active Substance: FOLIC ACID
     Indication: ANAEMIA
     Dosage: 1 MILLIGRAM, BID
     Route: 048
     Dates: start: 20180910
  12. NAVITOCLAX [Suspect]
     Active Substance: NAVITOCLAX
     Indication: MYELOFIBROSIS
     Dosage: 50 MILLIGRAM, QD
     Route: 048
     Dates: start: 20190213, end: 20190219
  13. PROAIR HFA [Concomitant]
     Active Substance: ALBUTEROL SULFATE
     Indication: BRONCHOSPASM
     Dosage: 90 MICROGRAM AS REQUIRED
     Dates: start: 20190314
  14. TRAMADOL. [Concomitant]
     Active Substance: TRAMADOL
     Indication: PAIN
     Dosage: 100 MILLIGRAM, Q8H, AS NEEDED
     Route: 048
     Dates: start: 20190123, end: 20190213
  15. TRAMADOL. [Concomitant]
     Active Substance: TRAMADOL
     Dosage: 50 MILLIGRAM, Q6H
     Route: 048
     Dates: start: 20190515
  16. MULTIVITAMINS [VITAMINS NOS] [Concomitant]
     Active Substance: VITAMINS
     Indication: SUPPLEMENTATION THERAPY
     Dosage: 1 DOSAGE FORM, QD
     Route: 048
     Dates: start: 2018

REACTIONS (13)
  - Squamous cell carcinoma of skin [Recovered/Resolved]
  - Back pain [Unknown]
  - Squamous cell carcinoma [Recovered/Resolved]
  - Basal cell carcinoma [Unknown]
  - Thrombocytopenia [Unknown]
  - Myalgia [Unknown]
  - Bone pain [Unknown]
  - Hypertension [Unknown]
  - Arthralgia [Unknown]
  - Fatigue [Unknown]
  - Blood cholesterol increased [Unknown]
  - Dyspnoea [Recovered/Resolved]
  - Liver function test abnormal [Unknown]

NARRATIVE: CASE EVENT DATE: 2018
